FAERS Safety Report 5987290-9 (Version None)
Quarter: 2008Q4

REPORT INFORMATION
  Report Type: 
  Country: None (occurrence: None)
  Receive Date: 20081209
  Receipt Date: 20081201
  Transmission Date: 20090506
  Serious: Yes (Hospitalization)
  Sender: FDA-Public Use
  Company Number: US-ELI_LILLY_AND_COMPANY-US200812000416

PATIENT
  Sex: Female
  Weight: 115.65 kg

DRUGS (7)
  1. BYETTA [Suspect]
     Indication: TYPE 2 DIABETES MELLITUS
     Dosage: 5 UG, 2/D
     Route: 058
     Dates: start: 20080801, end: 20080801
  2. BYETTA [Suspect]
     Dosage: 10 UG, 2/D
     Route: 058
     Dates: start: 20080801
  3. METFORMIN HCL [Concomitant]
     Indication: TYPE 2 DIABETES MELLITUS
     Dosage: 1000 MG, 2/D
     Route: 048
  4. GLYBURIDE [Concomitant]
     Indication: TYPE 2 DIABETES MELLITUS
     Dosage: 5 MG, 2/D
     Route: 048
  5. LISINOPRIL [Concomitant]
     Dosage: 10 MG, DAILY (1/D)
  6. ASPIRIN [Concomitant]
     Dosage: UNK, DAILY (1/D)
     Route: 048
  7. PRENATAL VITAMINS                  /01549301/ [Concomitant]
     Dosage: UNK, DAILY (1/D)

REACTIONS (5)
  - DECREASED APPETITE [None]
  - HYPERKERATOSIS [None]
  - NAUSEA [None]
  - OEDEMA PERIPHERAL [None]
  - SKIN ULCER [None]
